FAERS Safety Report 4715820-3 (Version None)
Quarter: 2005Q3

REPORT INFORMATION
  Report Type: 
  Country: None (occurrence: None)
  Receive Date: 20050718
  Receipt Date: 20031030
  Transmission Date: 20060218
  Serious: Yes (Hospitalization)
  Sender: FDA-Public Use
  Company Number: 2003AP03903

PATIENT
  Age: 932 Month
  Sex: Female
  Weight: 84 kg

DRUGS (6)
  1. ARIMIDEX [Suspect]
     Indication: BREAST CANCER
     Route: 048
     Dates: start: 20030201, end: 20031009
  2. NOLVADEX [Suspect]
     Indication: BREAST CANCER
     Route: 048
  3. ZANTAC [Concomitant]
     Route: 048
     Dates: end: 20031009
  4. ADALAT [Concomitant]
     Indication: HYPERTENSION
     Route: 048
     Dates: end: 20031009
  5. VITAMEDIN [Concomitant]
     Indication: NEURALGIA
     Route: 048
     Dates: start: 20030226, end: 20030414
  6. METHYLCOBAL [Concomitant]
     Indication: NEURALGIA
     Route: 048
     Dates: start: 20030226, end: 20030414

REACTIONS (1)
  - CUTANEOUS VASCULITIS [None]
